FAERS Safety Report 14959552 (Version 1)
Quarter: 2018Q2

REPORT INFORMATION
  Report Type: Spontaneous
  Country: US (occurrence: US)
  Receive Date: 20180531
  Receipt Date: 20180531
  Transmission Date: 20180711
  Serious: Yes (Other)
  Sender: FDA-Public Use
  Company Number: US-009507513-1805USA013247

PATIENT
  Age: 84 Year
  Sex: Male

DRUGS (2)
  1. XGEVA [Concomitant]
     Active Substance: DENOSUMAB
  2. KEYTRUDA [Suspect]
     Active Substance: PEMBROLIZUMAB
     Indication: LUNG NEOPLASM MALIGNANT
     Dosage: ONCE EVERY 3 WEEKS, ROUTE: ^PORT^
     Route: 042
     Dates: start: 201703

REACTIONS (3)
  - Drug effect decreased [Unknown]
  - Tumour marker abnormal [Unknown]
  - Malignant neoplasm progression [Unknown]

NARRATIVE: CASE EVENT DATE: 20180511
